FAERS Safety Report 5086260-5 (Version None)
Quarter: 2006Q3

REPORT INFORMATION
  Report Type: 
  Country: None (occurrence: None)
  Receive Date: 20060703
  Receipt Date: 20060222
  Transmission Date: 20061208
  Serious: No
  Sender: FDA-Public Use
  Company Number: 2006S1001562

PATIENT
  Age: 47 Year
  Sex: Male

DRUGS (8)
  1. CLOZAPINE [Suspect]
     Dosage: 400 MG;HS;ORAL
     Route: 048
     Dates: start: 20020401
  2. EZETIMIBE [Concomitant]
  3. FLUTICASONE PROPIONATE [Concomitant]
  4. SETRALINE HCL [Concomitant]
  5. VALPROATE SODIUM [Concomitant]
  6. ALPRAZOLAM [Concomitant]
  7. PIOGLITAZONE HYDROCHLORIDE [Concomitant]
  8. SIMVASTATIN [Concomitant]

REACTIONS (1)
  - GRANULOCYTOPENIA [None]
